FAERS Safety Report 7770398-5 (Version None)
Quarter: 2011Q3

REPORT INFORMATION
  Report Type: 
  Country: None (occurrence: None)
  Receive Date: 20110922
  Receipt Date: 20101118
  Transmission Date: 20111222
  Serious: No
  Sender: FDA-Public Use
  Company Number: US-ASTRAZENECA-2010SE55053

PATIENT
  Age: 54 Year
  Sex: Male
  Weight: 68 kg

DRUGS (7)
  1. SEROQUEL [Suspect]
     Indication: BIPOLAR DISORDER
     Route: 048
     Dates: start: 20080101
  2. CLONAZEPAM [Concomitant]
  3. PRISTIQ [Concomitant]
  4. AMBIEN [Concomitant]
  5. SEROQUEL [Suspect]
     Route: 048
  6. BENZONATE [Concomitant]
  7. MELOXICAM [Concomitant]
     Indication: ARTHRITIS

REACTIONS (4)
  - COLD SWEAT [None]
  - TREMOR [None]
  - INCORRECT DOSE ADMINISTERED [None]
  - DRUG DOSE OMISSION [None]
